FAERS Safety Report 21464040 (Version 6)
Quarter: 2022Q4

REPORT INFORMATION
  Report Type: Report from Study
  Country: BE (occurrence: BE)
  Receive Date: 20221017
  Receipt Date: 20221206
  Transmission Date: 20230113
  Serious: Yes (Hospitalization)
  Sender: FDA-Public Use
  Company Number: BE-ABBVIE-4154739

PATIENT
  Sex: Female
  Weight: 66 kg

DRUGS (12)
  1. CARBIDOPA\LEVODOPA [Suspect]
     Active Substance: CARBIDOPA\LEVODOPA
     Indication: Parkinson^s disease
     Dosage: MD: 8.0 ML, CD: 1.7 ML/H, ED: 1.5 ML DURING 16 HOURS
     Route: 050
     Dates: start: 20221007, end: 20221010
  2. CARBIDOPA\LEVODOPA [Suspect]
     Active Substance: CARBIDOPA\LEVODOPA
     Route: 050
     Dates: start: 20221003, end: 20221007
  3. CARBIDOPA\LEVODOPA [Suspect]
     Active Substance: CARBIDOPA\LEVODOPA
     Dosage: MD: 8.0 ML, CD: 2.8 ML/H, ED: 1.5 ML DURING 16 HOURS
     Route: 050
     Dates: start: 20221010
  4. CALCIUM [Concomitant]
     Active Substance: CALCIUM
     Indication: Mineral supplementation
  5. Pantomed [Concomitant]
     Indication: Product used for unknown indication
  6. REQUIP [Concomitant]
     Active Substance: ROPINIROLE HYDROCHLORIDE
     Indication: Parkinson^s disease
     Dosage: AT 08.00, 12.00, 16.00
     Dates: end: 20221005
  7. STALEVO [Concomitant]
     Active Substance: CARBIDOPA\ENTACAPONE\LEVODOPA
     Indication: Parkinson^s disease
     Dosage: AT 08.00
  8. STALEVO [Concomitant]
     Active Substance: CARBIDOPA\ENTACAPONE\LEVODOPA
     Indication: Parkinson^s disease
     Dosage: AT 12.00, 16.00, 20.00
  9. GLUCOPHAGE [Concomitant]
     Active Substance: METFORMIN HYDROCHLORIDE
     Indication: Type 2 diabetes mellitus
  10. Daflon [Concomitant]
     Indication: Cardiovascular disorder
  11. XADAGO [Concomitant]
     Active Substance: SAFINAMIDE MESYLATE
     Indication: Parkinson^s disease
  12. SIMVASTATIN [Concomitant]
     Active Substance: SIMVASTATIN
     Indication: Hypercholesterolaemia

REACTIONS (9)
  - Underdose [Unknown]
  - Memory impairment [Unknown]
  - Stress [Unknown]
  - On and off phenomenon [Unknown]
  - Stoma site discharge [Recovered/Resolved]
  - Gait disturbance [Recovering/Resolving]
  - Freezing phenomenon [Unknown]
  - Musculoskeletal stiffness [Unknown]
  - Anxiety [Not Recovered/Not Resolved]
